FAERS Safety Report 24608605 (Version 4)
Quarter: 2024Q4

REPORT INFORMATION
  Report Type: Spontaneous
  Country: MX (occurrence: MX)
  Receive Date: 20241112
  Receipt Date: 20241226
  Transmission Date: 20250114
  Serious: Yes (Other)
  Sender: SANDOZ
  Company Number: MX-002147023-NVSC2024MX078421

PATIENT
  Age: 56 Year
  Sex: Female
  Weight: 85 kg

DRUGS (8)
  1. KISQALI [Suspect]
     Active Substance: RIBOCICLIB
     Indication: Hepatic cancer
     Dosage: 3 DOSAGE FORM (3 X 200 MG), QHS
     Route: 048
  2. KISQALI [Suspect]
     Active Substance: RIBOCICLIB
     Indication: Breast cancer
     Dosage: 3 DOSAGE FORM (3 X 200 MG), QHS
     Route: 048
     Dates: start: 20240206
  3. KISQALI [Suspect]
     Active Substance: RIBOCICLIB
     Indication: Metastases to bone
     Dosage: 3 DOSAGE FORM (3 X 200 MG), QHS
     Route: 048
     Dates: start: 202402, end: 202408
  4. KISQALI [Suspect]
     Active Substance: RIBOCICLIB
     Dosage: 3 DF, QD (3 DOSAGE FORM (200 MG), QD)
     Route: 048
     Dates: start: 20240206, end: 202409
  5. KISQALI [Suspect]
     Active Substance: RIBOCICLIB
     Dosage: 3 DOSAGE FORM (200 MG), QD
     Route: 048
     Dates: start: 202402, end: 202409
  6. KISQALI [Suspect]
     Active Substance: RIBOCICLIB
     Indication: Bone cancer
     Dosage: 3 DOSAGE FORM (3 X 200 MG), QHS
     Route: 048
  7. ZOLEDRONIC ACID [Suspect]
     Active Substance: ZOLEDRONIC ACID
     Indication: Bone disorder
     Dosage: 1 DOSAGE FORM (1 APPLICATION), Q2MO
     Route: 042
     Dates: start: 20240206
  8. FULVESTRANT [Concomitant]
     Active Substance: FULVESTRANT
     Indication: Breast cancer
     Dosage: 2 DOSAGE FORM (2 APPLICATIONS), QMO
     Route: 030
     Dates: start: 20240206, end: 202408

REACTIONS (38)
  - Hallucination, visual [Not Recovered/Not Resolved]
  - Feeling abnormal [Unknown]
  - Feeling drunk [Unknown]
  - Dehydration [Recovered/Resolved]
  - Depressed mood [Not Recovered/Not Resolved]
  - Odynophagia [Recovered/Resolved]
  - Memory impairment [Not Recovered/Not Resolved]
  - Nightmare [Recovered/Resolved]
  - Food aversion [Not Recovered/Not Resolved]
  - Muscular weakness [Not Recovered/Not Resolved]
  - Mood altered [Not Recovered/Not Resolved]
  - Myoclonus [Not Recovered/Not Resolved]
  - Weight decreased [Recovered/Resolved]
  - Depression [Unknown]
  - Feeding disorder [Unknown]
  - Nightmare [Recovered/Resolved]
  - Dehydration [Unknown]
  - Abdominal discomfort [Not Recovered/Not Resolved]
  - Asthenia [Not Recovered/Not Resolved]
  - Dry mouth [Not Recovered/Not Resolved]
  - Decreased appetite [Recovered/Resolved]
  - Fatigue [Not Recovered/Not Resolved]
  - Back pain [Not Recovered/Not Resolved]
  - Dizziness [Recovered/Resolved]
  - Insomnia [Not Recovered/Not Resolved]
  - Headache [Unknown]
  - Vomiting [Recovered/Resolved]
  - Vomiting [Recovered/Resolved]
  - Vomiting [Recovered/Resolved]
  - Vomiting [Recovered/Resolved]
  - Vomiting [Recovered/Resolved]
  - Dizziness [Not Recovered/Not Resolved]
  - Dizziness [Recovered/Resolved]
  - Malaise [Recovered/Resolved]
  - Nausea [Recovered/Resolved]
  - Constipation [Not Recovered/Not Resolved]
  - Malaise [Unknown]
  - Drug ineffective [Not Recovered/Not Resolved]

NARRATIVE: CASE EVENT DATE: 20240201
